FAERS Safety Report 16410571 (Version 3)
Quarter: 2019Q3

REPORT INFORMATION
  Report Type: Spontaneous
  Country: US (occurrence: US)
  Receive Date: 20190610
  Receipt Date: 20190723
  Transmission Date: 20191004
  Serious: Yes (Other)
  Sender: FDA-Public Use
  Company Number: US-PFIZER INC-2019238148

PATIENT
  Age: 41 Year
  Sex: Male

DRUGS (2)
  1. IBUPROFEN. [Suspect]
     Active Substance: IBUPROFEN
     Indication: MYALGIA
     Dosage: 2 DF, AS NEEDED (2 TABS FOUR TIMES A DAY AS NEEDED)
     Route: 048
  2. IBUPROFEN. [Suspect]
     Active Substance: IBUPROFEN
     Indication: ARTHRALGIA

REACTIONS (6)
  - Drug hypersensitivity [Unknown]
  - Erythema [Unknown]
  - Swelling [Unknown]
  - Gastrointestinal haemorrhage [Unknown]
  - Animal bite [Unknown]
  - Pain [Unknown]

NARRATIVE: CASE EVENT DATE: 2014
